FAERS Safety Report 4678852-X (Version None)
Quarter: 2005Q2

REPORT INFORMATION
  Report Type: 
  Country: None (occurrence: None)
  Receive Date: 20050531
  Receipt Date: 20050523
  Transmission Date: 20051028
  Serious: Yes (Other)
  Sender: FDA-Public Use
  Company Number: 2005079090

PATIENT
  Age: 77 Year
  Sex: Female

DRUGS (7)
  1. LIPITOR [Suspect]
     Indication: ILL-DEFINED DISORDER
  2. PEPCID AC [Suspect]
     Indication: DYSPEPSIA
     Dosage: (AS NECESSARY), ORAL
     Route: 048
     Dates: start: 20050101, end: 20050101
  3. MALIC ACID (MALIC ACID) [Suspect]
     Indication: FIBROMYALGIA
  4. MAGNESIUM (MAGNESIUM) [Concomitant]
  5. PLAVIX [Suspect]
     Indication: ILL-DEFINED DISORDER
     Dosage: (75 MG)
  6. COZAAR [Suspect]
     Indication: ILL-DEFINED DISORDER
     Dosage: ORAL
     Route: 048
  7. FOLTX (CYANOCOBALAMIN, FOLIC ACID, PYRIDOXINE) [Concomitant]

REACTIONS (2)
  - ABASIA [None]
  - DIZZINESS [None]
